FAERS Safety Report 8800993 (Version 1)
Quarter: 2012Q4

REPORT INFORMATION
  Report Type: 
  Country: US (occurrence: US)
  Receive Date: 20120920
  Receipt Date: 20120920
  Transmission Date: 20130627
  Serious: Yes (Other)
  Sender: FDA-Public Use
  Company Number: US-009507513-1209USA007912

PATIENT
  Age: 76 Year

DRUGS (1)
  1. DECADRON [Suspect]

REACTIONS (2)
  - Renal failure acute [Unknown]
  - Plasma cell myeloma [Unknown]
